FAERS Safety Report 5191301-0 (Version None)
Quarter: 2006Q4

REPORT INFORMATION
  Report Type: 
  Country: None (occurrence: None)
  Receive Date: 20061226
  Receipt Date: 20061129
  Transmission Date: 20070319
  Serious: Yes (Hospitalization)
  Sender: FDA-Public Use
  Company Number: US-BRISTOL-MYERS SQUIBB COMPANY-13595814

PATIENT
  Age: 56 Year
  Sex: Male
  Weight: 86 kg

DRUGS (2)
  1. CISPLATIN [Suspect]
     Indication: NEOPLASM MALIGNANT
     Dates: start: 20061106, end: 20061106
  2. RADIATION THERAPY [Suspect]
     Indication: NEOPLASM MALIGNANT
     Dates: start: 20061122, end: 20061122

REACTIONS (5)
  - DEHYDRATION [None]
  - DIARRHOEA [None]
  - FEBRILE NEUTROPENIA [None]
  - OESOPHAGITIS [None]
  - STOMATITIS [None]
